FAERS Safety Report 25625396 (Version 2)
Quarter: 2025Q4

REPORT INFORMATION
  Report Type: Spontaneous
  Country: EU (occurrence: EU)
  Receive Date: 20250731
  Receipt Date: 20251217
  Transmission Date: 20260117
  Serious: Yes (Hospitalization, Other)
  Sender: CELLTRION
  Company Number: None

PATIENT

DRUGS (22)
  1. RITUXIMAB [Suspect]
     Active Substance: RITUXIMAB
     Indication: Product used for unknown indication
     Dosage: 1 DF
     Route: 065
     Dates: start: 20230317
  2. RITUXIMAB [Suspect]
     Active Substance: RITUXIMAB
     Dosage: 1 DF
     Route: 065
     Dates: start: 20230324
  3. BACTRIM [Suspect]
     Active Substance: SULFAMETHOXAZOLE\TRIMETHOPRIM
     Indication: Renal transplant
     Dosage: 800 MG, EVERY 0.5 DAY
     Route: 065
     Dates: start: 20220305
  4. BACTRIM [Suspect]
     Active Substance: SULFAMETHOXAZOLE\TRIMETHOPRIM
     Dosage: 800 MG EVERY 2 DAYS (800/160 MG)
     Route: 048
     Dates: start: 20220305
  5. CELLCEPT [Suspect]
     Active Substance: MYCOPHENOLATE MOFETIL
     Indication: Renal transplant
     Dosage: 750 MG, EVERY 12 HOURS (500 MG)
     Route: 048
     Dates: start: 20220305
  6. PREDNISONE [Suspect]
     Active Substance: PREDNISONE
     Indication: Renal transplant
     Dosage: MID-APRIL 2023
     Route: 065
     Dates: start: 202304
  7. PREDNISONE [Suspect]
     Active Substance: PREDNISONE
     Dosage: 8 MG EVERY 1 DAY
     Route: 065
     Dates: start: 20220905
  8. PREDNISONE [Suspect]
     Active Substance: PREDNISONE
     Dosage: 6 MG EVERY 1 DAY
     Route: 065
     Dates: start: 202211, end: 202301
  9. PREDNISONE [Suspect]
     Active Substance: PREDNISONE
     Dosage: INCREASE IN DOSE
     Route: 065
     Dates: start: 202303
  10. METHYLPREDNISOLONE [Suspect]
     Active Substance: METHYLPREDNISOLONE
     Indication: Product used for unknown indication
     Dosage: THREE BOLUSES
     Route: 065
     Dates: start: 202303
  11. NEORAL [Suspect]
     Active Substance: CYCLOSPORINE
     Indication: Renal transplant
     Dosage: 110 MG, EVERY 1 DAY
     Route: 048
     Dates: start: 20220305
  12. PRIVIGEN [Suspect]
     Active Substance: HUMAN IMMUNOGLOBULIN G
     Indication: Kidney transplant rejection
     Dosage: 2 G/KG, C1/INTRAVENOUS DRIP
     Route: 041
     Dates: start: 20230327
  13. PRIVIGEN [Suspect]
     Active Substance: HUMAN IMMUNOGLOBULIN G
     Dosage: 2 G/KG C2
     Route: 065
     Dates: start: 20230424
  14. PRIVIGEN [Suspect]
     Active Substance: HUMAN IMMUNOGLOBULIN G
     Dosage: 1 G/KG C3
     Route: 065
     Dates: start: 20230517
  15. PRIVIGEN [Suspect]
     Active Substance: HUMAN IMMUNOGLOBULIN G
     Dosage: 2 G/KG
     Route: 041
     Dates: start: 20230328
  16. PRIVIGEN [Suspect]
     Active Substance: HUMAN IMMUNOGLOBULIN G
     Dosage: 2 G/KG  C1/INTRAVENOUS DRIP
     Route: 041
     Dates: start: 20230329
  17. VALGANCICLOVIR HYDROCHLORIDE [Suspect]
     Active Substance: VALGANCICLOVIR HYDROCHLORIDE
     Indication: Cytomegalovirus infection
     Dosage: 450 MG, EVERY 1 DAY
     Route: 065
     Dates: start: 2023
  18. VALGANCICLOVIR HYDROCHLORIDE [Suspect]
     Active Substance: VALGANCICLOVIR HYDROCHLORIDE
     Dosage: UNK
     Route: 065
     Dates: start: 20220305, end: 20220905
  19. VALGANCICLOVIR HYDROCHLORIDE [Suspect]
     Active Substance: VALGANCICLOVIR HYDROCHLORIDE
     Dosage: 450 MG, EVERY 0.5 DAY
     Route: 065
     Dates: start: 202211, end: 202301
  20. POLYETHYLENE GLYCOL 4000 [Concomitant]
     Active Substance: POLYETHYLENE GLYCOL 4000
     Dosage: 10 G
     Route: 065
  21. LEUCOVORIN CALCIUM [Concomitant]
     Active Substance: LEUCOVORIN CALCIUM
     Dosage: 5 MG
     Route: 065
  22. MAGNESIUM PIDOLATE [Concomitant]
     Active Substance: MAGNESIUM PIDOLATE
     Dosage: 122 MG/10 ML

REACTIONS (8)
  - Confusional state [Recovered/Resolved]
  - Hallucination, visual [Recovered/Resolved]
  - Psychiatric decompensation [Recovered/Resolved]
  - Seizure [Unknown]
  - Anxiety [Not Recovered/Not Resolved]
  - Hypophagia [Unknown]
  - Sleep disorder [Unknown]
  - Off label use [Unknown]

NARRATIVE: CASE EVENT DATE: 20230517
